FAERS Safety Report 11183758 (Version 2)
Quarter: 2015Q3

REPORT INFORMATION
  Report Type: Spontaneous
  Country: US (occurrence: US)
  Receive Date: 20150612
  Receipt Date: 20150708
  Transmission Date: 20151125
  Serious: Yes (Hospitalization)
  Sender: FDA-Public Use
  Company Number: US-AUROBINDO-AUR-APL-2015-05046

PATIENT

DRUGS (3)
  1. VANCOMYCIN [Suspect]
     Active Substance: VANCOMYCIN
     Indication: PRODUCT USED FOR UNKNOWN INDICATION
     Route: 065
  2. LEVOFLOXACIN. [Suspect]
     Active Substance: LEVOFLOXACIN
     Indication: ORCHITIS
     Route: 065
  3. PIPERACILLIN AND TAZOBACTAM [Suspect]
     Active Substance: PIPERACILLIN SODIUM\TAZOBACTAM SODIUM
     Indication: PRODUCT USED FOR UNKNOWN INDICATION
     Route: 065

REACTIONS (11)
  - Tendon rupture [Unknown]
  - Leukocytosis [Recovering/Resolving]
  - Erythema [Unknown]
  - Chills [Recovering/Resolving]
  - Oedema peripheral [Unknown]
  - Pain in extremity [Unknown]
  - Pyrexia [Recovering/Resolving]
  - Night sweats [Recovering/Resolving]
  - Joint range of motion decreased [Unknown]
  - Muscular weakness [Unknown]
  - Skin warm [Recovering/Resolving]
